FAERS Safety Report 9283255 (Version 1)
Quarter: 2013Q2

REPORT INFORMATION
  Report Type: Spontaneous
  Country: US (occurrence: US)
  Receive Date: 20130510
  Receipt Date: 20130510
  Transmission Date: 20140414
  Serious: No
  Sender: FDA-Public Use
  Company Number: US-GLAXOSMITHKLINE-A0992798A

PATIENT
  Age: 65 Year
  Sex: Female

DRUGS (8)
  1. TYKERB [Suspect]
     Indication: BREAST CANCER
     Dosage: 1250MG PER DAY
     Route: 048
     Dates: start: 20120509
  2. MIRALAX [Concomitant]
  3. PROCHLORPERAZINE [Concomitant]
  4. OXYCODONE [Concomitant]
  5. LORAZEPAM [Concomitant]
  6. NASONEX [Concomitant]
  7. ZIAC [Concomitant]
  8. DEXILANT [Concomitant]

REACTIONS (1)
  - Rash [Unknown]
